FAERS Safety Report 4752510-5 (Version None)
Quarter: 2005Q3

REPORT INFORMATION
  Report Type: 
  Country: None (occurrence: None)
  Receive Date: 20050825
  Receipt Date: 20050816
  Transmission Date: 20060218
  Serious: Yes (Hospitalization)
  Sender: FDA-Public Use
  Company Number: PHEH2005US09114

PATIENT
  Age: 66 Year
  Sex: Female

DRUGS (2)
  1. VIVELLE-DOT [Suspect]
     Dosage: 0.25 MG/DAY, 2X WEEK
     Route: 062
  2. AVALIDE [Concomitant]

REACTIONS (10)
  - ASTHENOPIA [None]
  - CHEST DISCOMFORT [None]
  - CONFUSIONAL STATE [None]
  - DISORIENTATION [None]
  - DIZZINESS [None]
  - DYSPNOEA [None]
  - FATIGUE [None]
  - NECK PAIN [None]
  - PANIC ATTACK [None]
  - VEIN PAIN [None]
